FAERS Safety Report 17510640 (Version 1)
Quarter: 2020Q1

REPORT INFORMATION
  Report Type: Spontaneous
  Country: US (occurrence: US)
  Receive Date: 20200306
  Receipt Date: 20200306
  Transmission Date: 20200409
  Serious: Yes (Other)
  Sender: FDA-Public Use
  Company Number: US-GLAXOSMITHKLINE-US2016GSK024599

PATIENT
  Age: 17 Year
  Sex: Female

DRUGS (4)
  1. CONCERTA [Suspect]
     Active Substance: METHYLPHENIDATE HYDROCHLORIDE
     Indication: BIPOLAR DISORDER
     Dosage: UNK
  2. ABILIFY [Suspect]
     Active Substance: ARIPIPRAZOLE
     Indication: BIPOLAR DISORDER
     Dosage: UNK
  3. LITHIUM. [Suspect]
     Active Substance: LITHIUM
     Indication: BIPOLAR DISORDER
     Dosage: UNK
  4. LAMICTAL [Suspect]
     Active Substance: LAMOTRIGINE
     Indication: BIPOLAR DISORDER
     Dosage: UNK

REACTIONS (17)
  - Blood thyroid stimulating hormone decreased [Recovered/Resolved]
  - Hypertension [Unknown]
  - Thyroid disorder [Recovered/Resolved]
  - Dizziness [Unknown]
  - Hyperhidrosis [Unknown]
  - Electrocardiogram QT prolonged [Unknown]
  - Tremor [Unknown]
  - Therapeutic product effect incomplete [Unknown]
  - Tachycardia [Recovered/Resolved]
  - Hyperthyroidism [Unknown]
  - Goitre [Unknown]
  - Treatment noncompliance [Unknown]
  - Thyroxine free increased [Recovered/Resolved]
  - Weight decreased [Unknown]
  - Temperature intolerance [Unknown]
  - Palpitations [Unknown]
  - Toxicity to various agents [Recovered/Resolved]
